FAERS Safety Report 18257934 (Version 1)
Quarter: 2020Q3

REPORT INFORMATION
  Report Type: Spontaneous
  Country: US (occurrence: US)
  Receive Date: 20200911
  Receipt Date: 20200911
  Transmission Date: 20201103
  Serious: No
  Sender: FDA-Public Use
  Company Number: None

PATIENT
  Sex: Female

DRUGS (2)
  1. TRAZODONE [Concomitant]
     Active Substance: TRAZODONE HYDROCHLORIDE
  2. NATURE?THROID [Suspect]
     Active Substance: THYROID, PORCINE
     Indication: AUTOIMMUNE THYROIDITIS
     Dosage: ?          QUANTITY:2 TABLET(S);?

REACTIONS (9)
  - Malaise [None]
  - Memory impairment [None]
  - Confusional state [None]
  - Dizziness [None]
  - Alopecia [None]
  - Adjustment disorder with depressed mood [None]
  - Pain in extremity [None]
  - Fatigue [None]
  - Pain [None]
